FAERS Safety Report 6970675-1 (Version None)
Quarter: 2010Q3

REPORT INFORMATION
  Report Type: 
  Country: None (occurrence: None)
  Receive Date: 20100908
  Receipt Date: 20100826
  Transmission Date: 20110219
  Serious: Yes (Other)
  Sender: FDA-Public Use
  Company Number: US-PFIZER INC-2010108014

PATIENT
  Sex: Female
  Weight: 88.435 kg

DRUGS (6)
  1. GEODON [Suspect]
     Dosage: 80 MG, 1X/DAY
     Route: 048
  2. GEODON [Suspect]
     Dosage: 80 MG, 2X/DAY
     Route: 048
     Dates: start: 20100101
  3. ALPRAZOLAM [Concomitant]
     Indication: ANXIETY
     Dosage: 1 MG, 5X/DAY
  4. PRAVASTATIN [Concomitant]
     Indication: BLOOD CHOLESTEROL INCREASED
     Dosage: 80 MG, 1X/DAY
  5. THYROID TAB [Concomitant]
     Indication: THYROID DISORDER
     Dosage: 120 MG, 1X/DAY
     Route: 048
  6. FENOFIBRIC ACID [Concomitant]
     Indication: BLOOD CHOLESTEROL INCREASED
     Dosage: 135 MG, 1X/DAY
     Route: 048

REACTIONS (1)
  - DYSPNOEA [None]
